FAERS Safety Report 10133990 (Version 2)
Quarter: 2014Q2

REPORT INFORMATION
  Report Type: Spontaneous
  Country: FR (occurrence: FR)
  Receive Date: 20140428
  Receipt Date: 20140505
  Transmission Date: 20141212
  Serious: Yes (Hospitalization)
  Sender: FDA-Public Use
  Company Number: PHHY2014FR049543

PATIENT
  Age: 29 Year
  Sex: Female
  Weight: 60 kg

DRUGS (6)
  1. OXYTOCIN [Suspect]
  2. RANITIDINE [Suspect]
     Dosage: 300 MG, UNK
  3. BUPIVACAINE [Suspect]
     Dosage: 5 UG, UNK
  4. MORPHINE [Suspect]
     Dosage: 100 UG, UNK
  5. SUFENTANIL [Suspect]
     Dosage: 2.5 UG, UNK
  6. LIDOCAINE [Suspect]
     Dosage: 2 % (FOUR 5 ML EPIDURAL BOLUSES)

REACTIONS (3)
  - Hypotension [Recovered/Resolved]
  - Maternal exposure during pregnancy [Unknown]
  - Normal newborn [Unknown]
